FAERS Safety Report 7042117-1 (Version None)
Quarter: 2010Q4

REPORT INFORMATION
  Report Type: 
  Country: None (occurrence: None)
  Receive Date: 20101013
  Receipt Date: 20100405
  Transmission Date: 20110411
  Serious: No
  Sender: FDA-Public Use
  Company Number: US-ASTRAZENECA-2010SE14748

PATIENT
  Age: 25422 Day
  Sex: Male
  Weight: 90.7 kg

DRUGS (4)
  1. SYMBICORT [Suspect]
     Dosage: 160/4.5 UG 1 PUFF BID
     Route: 055
     Dates: start: 20100303
  2. SIMVASTATIN [Concomitant]
  3. ATIVAN [Concomitant]
  4. PROTONIX [Concomitant]

REACTIONS (1)
  - URINARY TRACT INFECTION [None]
